FAERS Safety Report 11844064 (Version 1)
Quarter: 2015Q4

REPORT INFORMATION
  Report Type: Spontaneous
  Country: JP (occurrence: JP)
  Receive Date: 20151217
  Receipt Date: 20151217
  Transmission Date: 20160305
  Serious: Yes (Other)
  Sender: FDA-Public Use
  Company Number: JP-SUN PHARMACEUTICAL INDUSTRIES LTD-2015RR-107706

PATIENT

DRUGS (10)
  1. PREDNISOLONE. [Suspect]
     Active Substance: PREDNISOLONE
     Indication: SCLERITIS
     Dosage: 40 MG, DAILY
     Route: 048
  2. PREDNISOLONE. [Suspect]
     Active Substance: PREDNISOLONE
     Indication: SCLERITIS
     Dosage: 30 MG, DAILY
     Route: 048
  3. PREDNISOLONE. [Suspect]
     Active Substance: PREDNISOLONE
     Indication: SCLERITIS
     Dosage: 10 MG, DAILY
     Route: 048
  4. TRIAMCINOLONE [Suspect]
     Active Substance: TRIAMCINOLONE
     Indication: SCLERITIS
     Route: 057
  5. CYCLOSPORINE. [Concomitant]
     Active Substance: CYCLOSPORINE
     Indication: SCLERITIS
     Dosage: 2 MG/KG, DAILY
     Route: 048
  6. CYCLOSPORINE. [Concomitant]
     Active Substance: CYCLOSPORINE
     Dosage: 3 MG/KG, DAILY
     Route: 048
  7. METHYLPREDNISOLONE. [Suspect]
     Active Substance: METHYLPREDNISOLONE
     Indication: SCLERITIS
     Dosage: 1 G, DAILY, TWO SETS OF PULSE THERAPY
     Route: 042
  8. BETAMETHASONE. [Suspect]
     Active Substance: BETAMETHASONE
     Indication: SCLERITIS
     Route: 061
  9. CYCLOSPORINE. [Concomitant]
     Active Substance: CYCLOSPORINE
     Indication: SCLERITIS
     Dosage: 3 MG/KG, DAILY
     Route: 048
  10. CYCLOSPORINE. [Concomitant]
     Active Substance: CYCLOSPORINE
     Indication: SCLERITIS
     Dosage: 4 MG/KG, DAILY
     Route: 048

REACTIONS (2)
  - Intraocular pressure increased [Recovering/Resolving]
  - Drug ineffective [Recovering/Resolving]
